FAERS Safety Report 19172706 (Version 1)
Quarter: 2021Q2

REPORT INFORMATION
  Report Type: Report from Study
  Country: KR (occurrence: KR)
  Receive Date: 20210423
  Receipt Date: 20210423
  Transmission Date: 20210717
  Serious: Yes (Hospitalization)
  Sender: FDA-Public Use
  Company Number: KR-ROCHE-2778083

PATIENT
  Age: 71 Year
  Sex: Male
  Weight: 76.5 kg

DRUGS (11)
  1. TAZOPERAN [Concomitant]
     Dates: start: 20210208, end: 20210208
  2. ACETAMINOPHEN. [Concomitant]
     Active Substance: ACETAMINOPHEN
     Dates: start: 20210325, end: 20210325
  3. ATEZOLIZUMAB. [Suspect]
     Active Substance: ATEZOLIZUMAB
     Indication: LUNG NEOPLASM MALIGNANT
     Route: 041
     Dates: start: 20210308, end: 20210329
  4. PROPACETAMOL [Concomitant]
     Active Substance: PROPACETAMOL
     Dates: start: 20210326, end: 20210328
  5. ATEZOLIZUMAB. [Suspect]
     Active Substance: ATEZOLIZUMAB
     Route: 041
     Dates: start: 20210406
  6. CEFEPIME [Concomitant]
     Active Substance: CEFEPIME HYDROCHLORIDE
     Dates: start: 20210326, end: 20210405
  7. PROPACETAMOL [Concomitant]
     Active Substance: PROPACETAMOL
     Dates: start: 20210207, end: 20210208
  8. VANCOMYCIN [Concomitant]
     Active Substance: VANCOMYCIN
     Dates: start: 20210329, end: 20210405
  9. TAMIFLU [Concomitant]
     Active Substance: OSELTAMIVIR PHOSPHATE
     Dates: start: 20210208, end: 20210212
  10. LEVOFLOXACIN. [Concomitant]
     Active Substance: LEVOFLOXACIN
     Dates: start: 20210207, end: 20210207
  11. AZITHROMYCIN ANHYDROUS. [Concomitant]
     Active Substance: AZITHROMYCIN ANHYDROUS
     Dates: start: 20210326, end: 20210328

REACTIONS (3)
  - Pyrexia [Recovered/Resolved]
  - Influenza [Recovered/Resolved]
  - Myalgia [Recovered/Resolved]

NARRATIVE: CASE EVENT DATE: 20210322
